FAERS Safety Report 8508856-8 (Version None)
Quarter: 2012Q3

REPORT INFORMATION
  Report Type: 
  Country: None (occurrence: None)
  Receive Date: 20120713
  Receipt Date: 20120711
  Transmission Date: 20120928
  Serious: Yes (Death)
  Sender: FDA-Public Use
  Company Number: PHHY2012JP046240

PATIENT
  Age: 73 Year
  Sex: Male

DRUGS (3)
  1. LASIX [Concomitant]
     Dosage: 40 MG, UNK
     Route: 048
  2. DROXIDOPA [Concomitant]
     Dosage: 300 MG, UNK
     Route: 048
  3. PARLODEL [Suspect]
     Indication: PARKINSON'S DISEASE
     Route: 048

REACTIONS (3)
  - PLEURISY [None]
  - PNEUMONIA [None]
  - DYSPHAGIA [None]
